FAERS Safety Report 9773623 (Version 1)
Quarter: 2013Q4

REPORT INFORMATION
  Report Type: Report from Study
  Country: PT (occurrence: PT)
  Receive Date: 20131219
  Receipt Date: 20131219
  Transmission Date: 20140711
  Serious: Yes (Hospitalization)
  Sender: FDA-Public Use
  Company Number: PT-BAXTER-2013BAX050745

PATIENT
  Sex: 0

DRUGS (1)
  1. KIOVIG 10 ML [Suspect]
     Indication: IMMUNODEFICIENCY COMMON VARIABLE
     Dosage: 400-500 MG/KG EVERY 4 TO 5 WEEKS
     Route: 065

REACTIONS (4)
  - Ascites [Unknown]
  - Hepatosplenomegaly [Unknown]
  - Lymphadenopathy [Unknown]
  - Peritoneal abscess [Unknown]
